FAERS Safety Report 4568001-0 (Version None)
Quarter: 2005Q1

REPORT INFORMATION
  Report Type: 
  Country: None (occurrence: None)
  Receive Date: 20050128
  Receipt Date: 20050117
  Transmission Date: 20050727
  Serious: Yes (Life-Threatening, Hospitalization)
  Sender: FDA-Public Use
  Company Number: 2004200824FR

PATIENT
  Age: 82 Year
  Sex: Female

DRUGS (11)
  1. CLINDAMYCIN HYDROCHLORIDE [Suspect]
     Indication: CATHETER RELATED INFECTION
     Dosage: (3D), ORAL
     Route: 048
     Dates: start: 20040214, end: 20040218
  2. CLINDAMYCIN HYDROCHLORIDE [Suspect]
     Indication: STAPHYLOCOCCAL INFECTION
     Dosage: (3D), ORAL
     Route: 048
     Dates: start: 20040214, end: 20040218
  3. LINEZOLID TABLET (LINEZOLID) [Suspect]
     Indication: CATHETER RELATED INFECTION
     Dosage: (2D), ORAL
     Route: 048
     Dates: start: 20040218, end: 20040223
  4. LINEZOLID TABLET (LINEZOLID) [Suspect]
     Indication: STAPHYLOCOCCAL INFECTION
     Dosage: (2D), ORAL
     Route: 048
     Dates: start: 20040218, end: 20040223
  5. PRISTINAMYCIN (PRISTINAMYCIN) [Concomitant]
  6. VANCOMYCIN [Concomitant]
  7. RIFAMPICIN [Concomitant]
  8. DOXYCYCLINE HYCLATE (DOXYCYCLINE HYCLATE) [Concomitant]
  9. FUROSEMIDE (FUROSEMIDE) [Concomitant]
  10. OMEPRAZOLE [Concomitant]
  11. INSULIN HUMAN ZINC SUSPENSION (INSULIN HUMAN ZINC SUSPENSION) [Concomitant]

REACTIONS (5)
  - CROSS SENSITIVITY REACTION [None]
  - CYTOLYTIC HEPATITIS [None]
  - DRUG RASH WITH EOSINOPHILIA AND SYSTEMIC SYMPTOMS [None]
  - RENAL FAILURE [None]
  - STEVENS-JOHNSON SYNDROME [None]
